FAERS Safety Report 26112629 (Version 1)
Quarter: 2025Q4

REPORT INFORMATION
  Report Type: Spontaneous
  Country: CH (occurrence: CH)
  Receive Date: 20251202
  Receipt Date: 20251202
  Transmission Date: 20260119
  Serious: Yes (Life-Threatening, Hospitalization, Other)
  Sender: MYLAN
  Company Number: None

PATIENT
  Age: 68 Year
  Sex: Female
  Weight: 58 kg

DRUGS (8)
  1. PREGABALIN [Interacting]
     Active Substance: PREGABALIN
     Indication: Product used for unknown indication
     Dosage: 50 MILLIGRAM, BID
     Dates: end: 20250813
  2. IBUPROFEN [Suspect]
     Active Substance: IBUPROFEN
     Indication: Product used for unknown indication
     Dosage: 400 MILLIGRAM, (1-2 X DAILY)
  3. DAFALGAN [Interacting]
     Active Substance: ACETAMINOPHEN
     Indication: Product used for unknown indication
     Dosage: 500 MILLIGRAM (1-2 X DAILY)
  4. METAMIZOLE [Suspect]
     Active Substance: METAMIZOLE
     Indication: Product used for unknown indication
     Dosage: UNK (500 MILLIGRAM PER MILLILITRE (40 DROPS 3-4 X DAILY)
  5. VITAMINS [Concomitant]
     Active Substance: VITAMINS
     Dosage: 1 DOSAGE FORM, 3XW (3 X WEEKLY 1 TAB)
  6. JEMPERLI [Concomitant]
     Active Substance: DOSTARLIMAB-GXLY
     Dosage: 500 MILLIGRAM, TOTAL
     Dates: start: 20250728, end: 20250728
  7. OXYCODONE [Concomitant]
     Active Substance: OXYCODONE
     Dosage: UNK, Q8H
  8. VISCUM ALBUM FRUITING TOP [Concomitant]
     Active Substance: VISCUM ALBUM FRUITING TOP
     Dosage: UNK, Q2D

REACTIONS (1)
  - Agranulocytosis [Recovering/Resolving]

NARRATIVE: CASE EVENT DATE: 20250813
